FAERS Safety Report 24038880 (Version 1)
Quarter: 2024Q3

REPORT INFORMATION
  Report Type: Spontaneous
  Country: US (occurrence: None)
  Receive Date: 20240702
  Receipt Date: 20240702
  Transmission Date: 20241016
  Serious: No
  Sender: ASTRAZENECA
  Company Number: 2024A136154

PATIENT
  Age: 18623 Day
  Sex: Female

DRUGS (1)
  1. TEZSPIRE [Suspect]
     Active Substance: TEZEPELUMAB-EKKO
     Indication: Coronavirus test
     Dosage: 210.0MG UNKNOWN
     Route: 058
     Dates: start: 20240216

REACTIONS (6)
  - Incorrect dose administered by device [Unknown]
  - Therapeutic response shortened [Unknown]
  - Dyspnoea [Unknown]
  - Device leakage [Recovered/Resolved]
  - Dyspnoea exertional [Unknown]
  - Gait disturbance [Unknown]

NARRATIVE: CASE EVENT DATE: 20240510
